FAERS Safety Report 5280135-4 (Version None)
Quarter: 2007Q1

REPORT INFORMATION
  Report Type: 
  Country: None (occurrence: None)
  Receive Date: 20061215
  Receipt Date: 20060710
  Transmission Date: 20070707
  Serious: Yes (Hospitalization, Other)
  Sender: FDA-Public Use
  Company Number: HQWYE764711JUL06

PATIENT
  Age: 66 Year
  Sex: Male
  Weight: 77.18 kg

DRUGS (15)
  1. EFFEXOR XR [Suspect]
     Indication: ANXIETY
     Dosage: 75 MG 2X PER 1 DAY, ORAL
     Route: 048
     Dates: start: 20050101
  2. EFFEXOR XR [Suspect]
     Indication: DEPRESSION
     Dosage: 75 MG 2X PER 1 DAY, ORAL
     Route: 048
     Dates: start: 20050101
  3. PROMETHAZINE [Concomitant]
  4. MECLIZINE [Concomitant]
  5. CRESTOR [Concomitant]
  6. TRICOR [Concomitant]
  7. ALLEGRA [Concomitant]
  8. PLAVIX [Concomitant]
  9. REQUIP [Concomitant]
  10. SEROQUEL [Concomitant]
  11. LISINOPRIL [Concomitant]
  12. ATIVAN [Concomitant]
  13. AMIDRINE (DICHLORALPHENAZONE/ISOMETHEPTENE MUCATE/PARACETAMOL) [Concomitant]
  14. PERCOCET [Concomitant]
  15. FIORICET [Concomitant]

REACTIONS (3)
  - DIARRHOEA [None]
  - GASTROINTESTINAL ULCER HAEMORRHAGE [None]
  - MYOCARDIAL INFARCTION [None]
